FAERS Safety Report 8388807-X (Version None)
Quarter: 2012Q2

REPORT INFORMATION
  Report Type: 
  Country: None (occurrence: None)
  Receive Date: 20120528
  Receipt Date: 20120514
  Transmission Date: 20120825
  Serious: Yes (Death, Hospitalization, Other)
  Sender: FDA-Public Use
  Company Number: ES-RANBAXY-2012RR-55101

PATIENT
  Sex: Female

DRUGS (2)
  1. NOLOTIL [Suspect]
     Indication: PRODUCT USED FOR UNKNOWN INDICATION
     Dosage: 2 G, TID
     Route: 064
  2. AMOXICILLIN AND CLAVULANATE POTASSIUM [Suspect]
     Indication: PRODUCT USED FOR UNKNOWN INDICATION
     Dosage: UNK
     Route: 064

REACTIONS (9)
  - FOETAL EXPOSURE DURING PREGNANCY [None]
  - DYSPNOEA [None]
  - PREMATURE DELIVERY [None]
  - OLIGOHYDRAMNIOS [None]
  - RIGHT VENTRICULAR HYPERTROPHY [None]
  - PATENT DUCTUS ARTERIOSUS [None]
  - PULMONARY HYPERTENSION [None]
  - HYDROPS FOETALIS [None]
  - RENAL FAILURE [None]
